FAERS Safety Report 24156716 (Version 3)
Quarter: 2024Q3

REPORT INFORMATION
  Report Type: Spontaneous
  Country: CN (occurrence: CN)
  Receive Date: 20240731
  Receipt Date: 20240807
  Transmission Date: 20241016
  Serious: Yes (Other)
  Sender: BLUEPRINT MEDICINES
  Company Number: CN-CSTONE PHARMACEUTICALS (SUZHOU) CO., LTD.-2024CN00970

PATIENT

DRUGS (2)
  1. GAVRETO [Suspect]
     Active Substance: PRALSETINIB
     Indication: Medullary thyroid cancer
     Dosage: 4 CAPSULES/DAY IN THE MORNING
     Route: 048
     Dates: start: 202109
  2. GAVRETO [Suspect]
     Active Substance: PRALSETINIB
     Dosage: 4 CAPSULES/DAY IN THE MORNING
     Route: 048
     Dates: start: 202109

REACTIONS (7)
  - Metastases to bone [Not Recovered/Not Resolved]
  - Carcinoembryonic antigen increased [Not Recovered/Not Resolved]
  - Thoracic vertebral fracture [Not Recovered/Not Resolved]
  - Drug resistance [Not Recovered/Not Resolved]
  - Blood calcitonin increased [Not Recovered/Not Resolved]
  - Granulocyte count increased [Not Recovered/Not Resolved]
  - Diarrhoea [Not Recovered/Not Resolved]

NARRATIVE: CASE EVENT DATE: 20240101
